FAERS Safety Report 17988197 (Version 2)
Quarter: 2020Q4

REPORT INFORMATION
  Report Type: Spontaneous
  Country: US (occurrence: US)
  Receive Date: 20200707
  Receipt Date: 20201123
  Transmission Date: 20210113
  Serious: No
  Sender: FDA-Public Use
  Company Number: US-CELGENEUS-USA-20200700556

PATIENT
  Sex: Female
  Weight: 72.64 kg

DRUGS (114)
  1. POMALYST [Suspect]
     Active Substance: POMALIDOMIDE
     Indication: PLASMA CELL MYELOMA
     Dosage: 4 MILLIGRAM
     Route: 048
     Dates: start: 20200605
  2. FIRSE-MOUTHWASH BLM [Concomitant]
     Route: 065
  3. DORZOLAMIDE-TIMOLOL [Concomitant]
     Active Substance: DORZOLAMIDE\TIMOLOL
     Route: 065
  4. LUMIGAN [Concomitant]
     Active Substance: BIMATOPROST
     Route: 065
  5. LUMIGAN [Concomitant]
     Active Substance: BIMATOPROST
     Route: 065
  6. BETIMOL [Concomitant]
     Active Substance: TIMOLOL
     Route: 065
  7. LISINOPRIL. [Concomitant]
     Active Substance: LISINOPRIL
     Route: 065
  8. ASPIRIN. [Concomitant]
     Active Substance: ASPIRIN
     Route: 065
  9. FISH OIL [Concomitant]
     Active Substance: FISH OIL
     Indication: PRODUCT USED FOR UNKNOWN INDICATION
     Route: 065
  10. PRESERVISION AREDS [Concomitant]
     Active Substance: MINERALS\VITAMINS
     Route: 065
  11. ATORVASTATIN [Concomitant]
     Active Substance: ATORVASTATIN
     Indication: PRODUCT USED FOR UNKNOWN INDICATION
     Route: 065
  12. ATORVASTATIN [Concomitant]
     Active Substance: ATORVASTATIN
     Route: 065
  13. ESOMEPRAZOLE. [Concomitant]
     Active Substance: ESOMEPRAZOLE MAGNESIUM
     Route: 065
  14. DEXAMETHASONE. [Concomitant]
     Active Substance: DEXAMETHASONE
     Route: 065
  15. DORZOLAMIDE-TIMOLOL [Concomitant]
     Active Substance: DORZOLAMIDE\TIMOLOL
     Indication: PRODUCT USED FOR UNKNOWN INDICATION
     Route: 065
  16. DORZOLAMIDE-TIMOLOL [Concomitant]
     Active Substance: DORZOLAMIDE\TIMOLOL
     Route: 065
  17. DORZOLAMIDE-TIMOLOL [Concomitant]
     Active Substance: DORZOLAMIDE\TIMOLOL
     Route: 065
  18. LUMIGAN [Concomitant]
     Active Substance: BIMATOPROST
     Route: 065
  19. BETIMOL [Concomitant]
     Active Substance: TIMOLOL
     Indication: PRODUCT USED FOR UNKNOWN INDICATION
     Route: 065
  20. BETIMOL [Concomitant]
     Active Substance: TIMOLOL
     Route: 065
  21. ASPIRIN. [Concomitant]
     Active Substance: ASPIRIN
     Route: 065
  22. CALCIUM [Concomitant]
     Active Substance: CALCIUM
     Route: 065
  23. CALCIUM [Concomitant]
     Active Substance: CALCIUM
     Route: 065
  24. PRESERVISION AREDS [Concomitant]
     Active Substance: MINERALS\VITAMINS
     Indication: PRODUCT USED FOR UNKNOWN INDICATION
     Route: 065
  25. FENOFIBRATE. [Concomitant]
     Active Substance: FENOFIBRATE
     Route: 065
  26. FENOFIBRATE. [Concomitant]
     Active Substance: FENOFIBRATE
     Route: 065
  27. POMALYST [Suspect]
     Active Substance: POMALIDOMIDE
     Dosage: 2 MILLIGRAM
     Route: 048
     Dates: start: 202007
  28. DEXAMETHASONE. [Concomitant]
     Active Substance: DEXAMETHASONE
     Route: 065
  29. FIRSE-MOUTHWASH BLM [Concomitant]
     Indication: PRODUCT USED FOR UNKNOWN INDICATION
     Route: 065
  30. FIRSE-MOUTHWASH BLM [Concomitant]
     Route: 065
  31. LISINOPRIL. [Concomitant]
     Active Substance: LISINOPRIL
     Indication: PRODUCT USED FOR UNKNOWN INDICATION
     Route: 065
  32. LISINOPRIL. [Concomitant]
     Active Substance: LISINOPRIL
     Route: 065
  33. ASPIRIN. [Concomitant]
     Active Substance: ASPIRIN
     Route: 065
  34. ATORVASTATIN [Concomitant]
     Active Substance: ATORVASTATIN
     Route: 065
  35. ATORVASTATIN [Concomitant]
     Active Substance: ATORVASTATIN
     Route: 065
  36. ESOMEPRAZOLE. [Concomitant]
     Active Substance: ESOMEPRAZOLE MAGNESIUM
     Route: 065
  37. FENOFIBRATE. [Concomitant]
     Active Substance: FENOFIBRATE
     Route: 065
  38. METFORMIN [Concomitant]
     Active Substance: METFORMIN HYDROCHLORIDE
     Route: 065
  39. FIRSE-MOUTHWASH BLM [Concomitant]
     Route: 065
  40. FIRSE-MOUTHWASH BLM [Concomitant]
     Route: 065
  41. BETIMOL [Concomitant]
     Active Substance: TIMOLOL
     Route: 065
  42. ASPIRIN. [Concomitant]
     Active Substance: ASPIRIN
     Route: 065
  43. MULTIVITAMIN [Concomitant]
     Active Substance: VITAMINS
     Route: 065
  44. MULTIVITAMIN [Concomitant]
     Active Substance: VITAMINS
     Route: 065
  45. PRESERVISION AREDS [Concomitant]
     Active Substance: MINERALS\VITAMINS
     Route: 065
  46. VITAMIN D [Concomitant]
     Active Substance: VITAMIN D NOS
     Indication: PRODUCT USED FOR UNKNOWN INDICATION
     Route: 065
  47. ESOMEPRAZOLE. [Concomitant]
     Active Substance: ESOMEPRAZOLE MAGNESIUM
     Route: 065
  48. FENOFIBRATE. [Concomitant]
     Active Substance: FENOFIBRATE
     Route: 065
  49. METFORMIN [Concomitant]
     Active Substance: METFORMIN HYDROCHLORIDE
     Route: 065
  50. METFORMIN [Concomitant]
     Active Substance: METFORMIN HYDROCHLORIDE
     Route: 065
  51. FIRSE-MOUTHWASH BLM [Concomitant]
     Route: 065
  52. LUMIGAN [Concomitant]
     Active Substance: BIMATOPROST
     Indication: PRODUCT USED FOR UNKNOWN INDICATION
     Route: 065
  53. LUMIGAN [Concomitant]
     Active Substance: BIMATOPROST
     Route: 065
  54. LUMIGAN [Concomitant]
     Active Substance: BIMATOPROST
     Route: 065
  55. LISINOPRIL. [Concomitant]
     Active Substance: LISINOPRIL
     Route: 065
  56. CALCIUM [Concomitant]
     Active Substance: CALCIUM
     Route: 065
  57. CALCIUM [Concomitant]
     Active Substance: CALCIUM
     Route: 065
  58. MULTIVITAMIN [Concomitant]
     Active Substance: VITAMINS
     Route: 065
  59. MULTIVITAMIN [Concomitant]
     Active Substance: VITAMINS
     Route: 065
  60. VITAMIN D [Concomitant]
     Active Substance: VITAMIN D NOS
     Route: 065
  61. VITAMIN D [Concomitant]
     Active Substance: VITAMIN D NOS
     Route: 065
  62. ESOMEPRAZOLE. [Concomitant]
     Active Substance: ESOMEPRAZOLE MAGNESIUM
     Route: 065
  63. FENOFIBRATE. [Concomitant]
     Active Substance: FENOFIBRATE
     Indication: PRODUCT USED FOR UNKNOWN INDICATION
     Route: 065
  64. DEXAMETHASONE. [Concomitant]
     Active Substance: DEXAMETHASONE
     Indication: PRODUCT USED FOR UNKNOWN INDICATION
     Route: 065
  65. DEXAMETHASONE. [Concomitant]
     Active Substance: DEXAMETHASONE
     Route: 065
  66. FIRSE-MOUTHWASH BLM [Concomitant]
     Route: 065
  67. DORZOLAMIDE-TIMOLOL [Concomitant]
     Active Substance: DORZOLAMIDE\TIMOLOL
     Route: 065
  68. BETIMOL [Concomitant]
     Active Substance: TIMOLOL
     Route: 065
  69. BETIMOL [Concomitant]
     Active Substance: TIMOLOL
     Route: 065
  70. LISINOPRIL. [Concomitant]
     Active Substance: LISINOPRIL
     Route: 065
  71. ASPIRIN. [Concomitant]
     Active Substance: ASPIRIN
     Route: 065
  72. CALCIUM [Concomitant]
     Active Substance: CALCIUM
     Indication: PRODUCT USED FOR UNKNOWN INDICATION
     Route: 065
  73. CALCIUM [Concomitant]
     Active Substance: CALCIUM
     Route: 065
  74. CALCIUM [Concomitant]
     Active Substance: CALCIUM
     Route: 065
  75. FISH OIL [Concomitant]
     Active Substance: FISH OIL
     Route: 065
  76. FISH OIL [Concomitant]
     Active Substance: FISH OIL
     Route: 065
  77. FISH OIL [Concomitant]
     Active Substance: FISH OIL
     Route: 065
  78. PRESERVISION AREDS [Concomitant]
     Active Substance: MINERALS\VITAMINS
     Route: 065
  79. PRESERVISION AREDS [Concomitant]
     Active Substance: MINERALS\VITAMINS
     Route: 065
  80. VITAMIN D [Concomitant]
     Active Substance: VITAMIN D NOS
     Route: 065
  81. VITAMIN D [Concomitant]
     Active Substance: VITAMIN D NOS
     Route: 065
  82. DEXAMETHASONE. [Concomitant]
     Active Substance: DEXAMETHASONE
     Route: 065
  83. DORZOLAMIDE-TIMOLOL [Concomitant]
     Active Substance: DORZOLAMIDE\TIMOLOL
     Route: 065
  84. LUMIGAN [Concomitant]
     Active Substance: BIMATOPROST
     Route: 065
  85. FISH OIL [Concomitant]
     Active Substance: FISH OIL
     Route: 065
  86. ATORVASTATIN [Concomitant]
     Active Substance: ATORVASTATIN
     Route: 065
  87. ESOMEPRAZOLE. [Concomitant]
     Active Substance: ESOMEPRAZOLE MAGNESIUM
     Indication: PRODUCT USED FOR UNKNOWN INDICATION
     Route: 065
  88. ESOMEPRAZOLE. [Concomitant]
     Active Substance: ESOMEPRAZOLE MAGNESIUM
     Route: 065
  89. ESOMEPRAZOLE. [Concomitant]
     Active Substance: ESOMEPRAZOLE MAGNESIUM
     Route: 065
  90. METFORMIN [Concomitant]
     Active Substance: METFORMIN HYDROCHLORIDE
     Indication: PRODUCT USED FOR UNKNOWN INDICATION
     Route: 065
  91. METFORMIN [Concomitant]
     Active Substance: METFORMIN HYDROCHLORIDE
     Route: 065
  92. METFORMIN [Concomitant]
     Active Substance: METFORMIN HYDROCHLORIDE
     Route: 065
  93. METFORMIN [Concomitant]
     Active Substance: METFORMIN HYDROCHLORIDE
     Route: 065
  94. DEXAMETHASONE. [Concomitant]
     Active Substance: DEXAMETHASONE
     Route: 065
  95. DEXAMETHASONE. [Concomitant]
     Active Substance: DEXAMETHASONE
     Route: 065
  96. DORZOLAMIDE-TIMOLOL [Concomitant]
     Active Substance: DORZOLAMIDE\TIMOLOL
     Route: 065
  97. BETIMOL [Concomitant]
     Active Substance: TIMOLOL
     Route: 065
  98. LISINOPRIL. [Concomitant]
     Active Substance: LISINOPRIL
     Route: 065
  99. LISINOPRIL. [Concomitant]
     Active Substance: LISINOPRIL
     Route: 065
  100. ASPIRIN. [Concomitant]
     Active Substance: ASPIRIN
     Indication: PRODUCT USED FOR UNKNOWN INDICATION
     Route: 065
  101. ASPIRIN. [Concomitant]
     Active Substance: ASPIRIN
     Route: 065
  102. FISH OIL [Concomitant]
     Active Substance: FISH OIL
     Route: 065
  103. FISH OIL [Concomitant]
     Active Substance: FISH OIL
     Route: 065
  104. MULTIVITAMIN [Concomitant]
     Active Substance: VITAMINS
     Indication: PRODUCT USED FOR UNKNOWN INDICATION
     Route: 065
  105. MULTIVITAMIN [Concomitant]
     Active Substance: VITAMINS
     Route: 065
  106. MULTIVITAMIN [Concomitant]
     Active Substance: VITAMINS
     Route: 065
  107. PRESERVISION AREDS [Concomitant]
     Active Substance: MINERALS\VITAMINS
     Route: 065
  108. PRESERVISION AREDS [Concomitant]
     Active Substance: MINERALS\VITAMINS
     Route: 065
  109. VITAMIN D [Concomitant]
     Active Substance: VITAMIN D NOS
     Route: 065
  110. VITAMIN D [Concomitant]
     Active Substance: VITAMIN D NOS
     Route: 065
  111. ATORVASTATIN [Concomitant]
     Active Substance: ATORVASTATIN
     Route: 065
  112. ATORVASTATIN [Concomitant]
     Active Substance: ATORVASTATIN
     Route: 065
  113. FENOFIBRATE. [Concomitant]
     Active Substance: FENOFIBRATE
     Route: 065
  114. FENOFIBRATE. [Concomitant]
     Active Substance: FENOFIBRATE
     Route: 065

REACTIONS (4)
  - Gastric disorder [Unknown]
  - Fatigue [Unknown]
  - Nausea [Unknown]
  - Pain [Unknown]

NARRATIVE: CASE EVENT DATE: 2020
